FAERS Safety Report 16311658 (Version 3)
Quarter: 2019Q3

REPORT INFORMATION
  Report Type: Report from Study
  Country: FR (occurrence: FR)
  Receive Date: 20190514
  Receipt Date: 20190808
  Transmission Date: 20191004
  Serious: Yes (Death, Other)
  Sender: FDA-Public Use
  Company Number: FR-JAZZ-2018-FR-016145

PATIENT

DRUGS (2)
  1. DEFITELIO [Suspect]
     Active Substance: DEFIBROTIDE SODIUM
     Indication: VENOOCCLUSIVE LIVER DISEASE
     Dosage: 23.9 MG/K/DAY
     Route: 065
     Dates: start: 20180713, end: 20180718
  2. DEFITELIO [Suspect]
     Active Substance: DEFIBROTIDE SODIUM
     Indication: PROPHYLAXIS

REACTIONS (11)
  - Enterobacter infection [Fatal]
  - Pseudomonal sepsis [Fatal]
  - Staphylococcal infection [Fatal]
  - Underdose [Unknown]
  - Off label use [Unknown]
  - Cellulitis [Fatal]
  - Septic shock [Fatal]
  - Haematoma [Unknown]
  - Starvation [Unknown]
  - Renal failure [Unknown]
  - Haemophagocytic lymphohistiocytosis [Unknown]

NARRATIVE: CASE EVENT DATE: 20180713
